FAERS Safety Report 13365055 (Version 1)
Quarter: 2017Q1

REPORT INFORMATION
  Report Type: Spontaneous
  Country: US (occurrence: US)
  Receive Date: 20170323
  Receipt Date: 20170323
  Transmission Date: 20170429
  Serious: No
  Sender: FDA-Public Use
  Company Number: US-ROCHE-1343836

PATIENT
  Sex: Male

DRUGS (8)
  1. XOLAIR [Suspect]
     Active Substance: OMALIZUMAB
     Indication: ASTHMA
     Dosage: THREE VIALS , STARTED THE 17 OR 18 OF NOV 2013
     Route: 065
     Dates: start: 201311, end: 20140124
  2. ENTOCORT [Concomitant]
     Active Substance: BUDESONIDE
  3. XOLAIR [Suspect]
     Active Substance: OMALIZUMAB
     Indication: HYPERSENSITIVITY
  4. FLONASE [Concomitant]
     Active Substance: FLUTICASONE PROPIONATE
  5. SINGULAIR [Concomitant]
     Active Substance: MONTELUKAST SODIUM
     Route: 065
  6. XOPENEX HFA [Concomitant]
     Active Substance: LEVALBUTEROL TARTRATE
     Dosage: PRN
     Route: 065
  7. PREDNISONE. [Concomitant]
     Active Substance: PREDNISONE
  8. GASTROCROM [Concomitant]
     Active Substance: CROMOLYN SODIUM

REACTIONS (3)
  - Blood immunoglobulin E increased [Unknown]
  - Hypersensitivity [Unknown]
  - Drug ineffective [Unknown]
